FAERS Safety Report 7238831-5 (Version None)
Quarter: 2011Q1

REPORT INFORMATION
  Report Type: 
  Country: None (occurrence: None)
  Receive Date: 20110121
  Receipt Date: 20110112
  Transmission Date: 20110831
  Serious: Yes (Hospitalization)
  Sender: FDA-Public Use
  Company Number: PHHO2011MX00985

PATIENT
  Sex: Female
  Weight: 73 kg

DRUGS (1)
  1. AFINITOR [Suspect]
     Indication: NEOPLASM MALIGNANT
     Dosage: 10 MG, PER DAY
     Route: 048
     Dates: start: 20090522

REACTIONS (2)
  - PERICARDIAL EFFUSION [None]
  - PERICARDIAL DRAINAGE [None]
